FAERS Safety Report 22929687 (Version 2)
Quarter: 2023Q4

REPORT INFORMATION
  Report Type: Other
  Country: JP (occurrence: None)
  Receive Date: 20230911
  Receipt Date: 20231009
  Transmission Date: 20240110
  Serious: Yes (Other)
  Sender: FDA-Public Use
  Company Number: JP-ROCHE-3417521

PATIENT

DRUGS (4)
  1. ATEZOLIZUMAB [Suspect]
     Active Substance: ATEZOLIZUMAB
     Indication: Non-small cell lung cancer
     Route: 065
  2. BEVACIZUMAB [Suspect]
     Active Substance: BEVACIZUMAB
     Indication: Non-small cell lung cancer
     Route: 065
  3. CARBOPLATIN [Suspect]
     Active Substance: CARBOPLATIN
     Indication: Non-small cell lung cancer
     Route: 065
  4. PACLITAXEL [Suspect]
     Active Substance: PACLITAXEL
     Indication: Non-small cell lung cancer
     Route: 065

REACTIONS (12)
  - Pulmonary toxicity [Unknown]
  - Toxicity to various agents [Unknown]
  - Thyroid disorder [Unknown]
  - Hypothalamo-pituitary disorder [Unknown]
  - Haemoptysis [Unknown]
  - Hyperglycaemia [Unknown]
  - Arthralgia [Unknown]
  - Colitis [Unknown]
  - Pneumothorax [Unknown]
  - Hyperamylasaemia [Unknown]
  - Diarrhoea [Unknown]
  - Skin toxicity [Unknown]
